FAERS Safety Report 6900894-1 (Version None)
Quarter: 2010Q3

REPORT INFORMATION
  Report Type: 
  Country: None (occurrence: None)
  Receive Date: 20100803
  Receipt Date: 20100722
  Transmission Date: 20110219
  Serious: Yes (Hospitalization)
  Sender: FDA-Public Use
  Company Number: A0867538A

PATIENT
  Age: 54 Year
  Sex: Male
  Weight: 121.4 kg

DRUGS (7)
  1. AVANDIA [Suspect]
     Dosage: 8MG PER DAY
     Route: 048
     Dates: start: 20011101, end: 20070904
  2. ZIAC [Concomitant]
  3. LIPITOR [Concomitant]
  4. TRICOR [Concomitant]
  5. PLENDIL [Concomitant]
  6. METFORMIN HCL [Concomitant]
  7. SKELAXIN [Concomitant]

REACTIONS (4)
  - CARDIAC FAILURE CONGESTIVE [None]
  - CORONARY ARTERY DISEASE [None]
  - OEDEMA PERIPHERAL [None]
  - RENAL FAILURE ACUTE [None]
